FAERS Safety Report 4973277-1 (Version None)
Quarter: 2006Q2

REPORT INFORMATION
  Report Type: 
  Country: None (occurrence: None)
  Receive Date: 20060414
  Receipt Date: 20051007
  Transmission Date: 20061013
  Serious: Yes (Hospitalization, Other)
  Sender: FDA-Public Use
  Company Number: US-MERCK-0510USA06453

PATIENT
  Age: 55 Year
  Sex: Female
  Weight: 82 kg

DRUGS (2)
  1. VIOXX [Suspect]
     Indication: ARTHRITIS
     Route: 048
     Dates: start: 20000523, end: 20010712
  2. VIOXX [Suspect]
     Indication: PAIN MANAGEMENT
     Route: 048
     Dates: start: 20000523, end: 20010712

REACTIONS (8)
  - ANXIETY [None]
  - BACK DISORDER [None]
  - CONVULSION [None]
  - FALL [None]
  - NECK INJURY [None]
  - PAIN IN EXTREMITY [None]
  - THALAMIC INFARCTION [None]
  - TRANSIENT ISCHAEMIC ATTACK [None]
